FAERS Safety Report 7117333-0 (Version None)
Quarter: 2010Q4

REPORT INFORMATION
  Report Type: 
  Country: None (occurrence: None)
  Receive Date: 20101122
  Receipt Date: 20101115
  Transmission Date: 20110411
  Serious: Yes (Death, Hospitalization)
  Sender: FDA-Public Use
  Company Number: VE-PFIZER INC-2010140414

PATIENT
  Age: 68 Year
  Sex: Female

DRUGS (5)
  1. LIPITOR [Suspect]
     Indication: HYPERCHOLESTEROLAEMIA
     Dosage: 40 MG, 1X/DAY
     Route: 048
     Dates: start: 20090501, end: 20090522
  2. ASCORBIC ACID [Concomitant]
     Dosage: UNK
     Route: 048
     Dates: end: 20090522
  3. VITAMIN E [Concomitant]
     Dosage: UNK
     Route: 048
     Dates: end: 20090522
  4. ENALAPRIL [Concomitant]
     Indication: HYPERTENSION
     Dosage: UNK
     Route: 048
     Dates: end: 20090522
  5. LASIX [Concomitant]
     Indication: HYPERTENSION
     Dosage: UNK
     Route: 048
     Dates: end: 20090522

REACTIONS (3)
  - CARDIAC DISORDER [None]
  - INFARCTION [None]
  - RESPIRATORY DISORDER [None]
